FAERS Safety Report 9775398 (Version 1)
Quarter: 2013Q4

REPORT INFORMATION
  Report Type: Spontaneous
  Country: MX (occurrence: MX)
  Receive Date: 20131220
  Receipt Date: 20131220
  Transmission Date: 20140711
  Serious: Yes (Other)
  Sender: FDA-Public Use
  Company Number: MX-SA-2013SA131012

PATIENT
  Sex: Male

DRUGS (1)
  1. CEREZYME [Suspect]
     Indication: GAUCHER^S DISEASE
     Route: 042

REACTIONS (4)
  - Convulsion [Unknown]
  - Nervousness [Unknown]
  - Insomnia [Unknown]
  - Aggression [Unknown]
